FAERS Safety Report 4838128-4 (Version None)
Quarter: 2005Q4

REPORT INFORMATION
  Report Type: 
  Country: None (occurrence: None)
  Receive Date: 20051128
  Receipt Date: 20051115
  Transmission Date: 20060501
  Serious: Yes (Other)
  Sender: FDA-Public Use
  Company Number: PHBS2005ZA16854

PATIENT
  Age: 42 Year
  Sex: Female

DRUGS (1)
  1. VOLTAREN [Suspect]
     Indication: HEADACHE
     Dosage: 1 DF, ONCE/SINGLE
     Route: 030

REACTIONS (2)
  - INJECTION SITE NECROSIS [None]
  - INJECTION SITE PAIN [None]
